FAERS Safety Report 26087904 (Version 1)
Quarter: 2025Q4

REPORT INFORMATION
  Report Type: Spontaneous
  Country: IN (occurrence: IN)
  Receive Date: 20251125
  Receipt Date: 20251125
  Transmission Date: 20260117
  Serious: Yes (Other)
  Sender: JOHNSON AND JOHNSON
  Company Number: IN-JNJFOC-20251167420

PATIENT
  Age: 9 Month

DRUGS (2)
  1. REMICADE [Suspect]
     Active Substance: INFLIXIMAB
     Indication: Kawasaki^s disease
     Route: 041
  2. IVIGLOB EX [Suspect]
     Active Substance: HUMAN IMMUNOGLOBULIN G
     Indication: Kawasaki^s disease
     Route: 065

REACTIONS (2)
  - Coronary artery thrombosis [Recovered/Resolved]
  - Off label use [Unknown]
